FAERS Safety Report 17359868 (Version 1)
Quarter: 2020Q1

REPORT INFORMATION
  Report Type: Spontaneous
  Country: AU (occurrence: AU)
  Receive Date: 20200203
  Receipt Date: 20200203
  Transmission Date: 20200409
  Serious: Yes (Death, Other)
  Sender: FDA-Public Use
  Company Number: AU-B.I. PHARMACEUTICALS,INC./RIDGEFIELD-2020-BI-005375

PATIENT
  Age: 82 Year
  Sex: Female
  Weight: 63 kg

DRUGS (8)
  1. GADOVIST [Suspect]
     Active Substance: GADOBUTROL
     Indication: MAGNETIC RESONANCE IMAGING
  2. MICARDIS [Suspect]
     Active Substance: TELMISARTAN
     Indication: PRODUCT USED FOR UNKNOWN INDICATION
     Route: 065
  3. ATENOLOL. [Concomitant]
     Active Substance: ATENOLOL
     Indication: PRODUCT USED FOR UNKNOWN INDICATION
     Route: 065
  4. CALCIUM CARBONATE. [Concomitant]
     Active Substance: CALCIUM CARBONATE
     Indication: PRODUCT USED FOR UNKNOWN INDICATION
     Route: 065
  5. GADOVIST [Suspect]
     Active Substance: GADOBUTROL
     Indication: ABDOMINAL PAIN UPPER
     Dosage: AT 7.5 ML AS TOTAL ADMINISTRATION
     Route: 065
     Dates: start: 20170324
  6. ZANIDIP [Suspect]
     Active Substance: LERCANIDIPINE HYDROCHLORIDE
     Indication: PRODUCT USED FOR UNKNOWN INDICATION
     Route: 065
     Dates: start: 20170324
  7. PANADEINE FORTE [Concomitant]
     Active Substance: ACETAMINOPHEN\CODEINE PHOSPHATE
     Indication: PRODUCT USED FOR UNKNOWN INDICATION
     Route: 065
  8. COLECALCIFEROL [Concomitant]
     Active Substance: CHOLECALCIFEROL
     Indication: PRODUCT USED FOR UNKNOWN INDICATION
     Route: 065

REACTIONS (34)
  - Multiple organ dysfunction syndrome [Fatal]
  - Rales [Fatal]
  - Contrast media reaction [Fatal]
  - Adenocarcinoma pancreas [Fatal]
  - Hypertension [Fatal]
  - Peripheral circulatory failure [Unknown]
  - Pulse absent [Unknown]
  - Bradycardia [Unknown]
  - Cyanosis [Fatal]
  - Lung infiltration [Fatal]
  - Chronic kidney disease [Fatal]
  - Pleural effusion [Fatal]
  - Peripheral ischaemia [Fatal]
  - Cardiac arrest [Unknown]
  - Lactic acidosis [Unknown]
  - Anuria [Unknown]
  - Nausea [Unknown]
  - Pallor [Unknown]
  - Peripheral artery thrombosis [Unknown]
  - Somnolence [Unknown]
  - Wheezing [Unknown]
  - Hypotension [Fatal]
  - Pulmonary congestion [Fatal]
  - Gastrooesophageal reflux disease [Fatal]
  - Dyspnoea [Unknown]
  - Acute pulmonary oedema [Fatal]
  - Hepatic congestion [Fatal]
  - Multiple organ dysfunction syndrome [Fatal]
  - Acute kidney injury [Unknown]
  - Haemorrhage coronary artery [Fatal]
  - Hyperkalaemia [Unknown]
  - Presyncope [Unknown]
  - Pancreatic haemorrhage [Fatal]
  - Arteriosclerosis coronary artery [Fatal]

NARRATIVE: CASE EVENT DATE: 20170324
